FAERS Safety Report 4698531-2 (Version None)
Quarter: 2005Q2

REPORT INFORMATION
  Report Type: 
  Country: None (occurrence: None)
  Receive Date: 20050622
  Receipt Date: 20050613
  Transmission Date: 20051028
  Serious: Yes (Other)
  Sender: FDA-Public Use
  Company Number: 2005088960

PATIENT
  Sex: Male
  Weight: 76.2043 kg

DRUGS (2)
  1. CELEBREX [Suspect]
     Indication: OSTEOARTHRITIS
     Dosage: 200 MG
  2. NEXIUM [Concomitant]

REACTIONS (2)
  - EYE HAEMORRHAGE [None]
  - EYE PAIN [None]
